FAERS Safety Report 8127880-0 (Version None)
Quarter: 2012Q1

REPORT INFORMATION
  Report Type: 
  Country: None (occurrence: None)
  Receive Date: 20120210
  Receipt Date: 20111128
  Transmission Date: 20120608
  Serious: No
  Sender: FDA-Public Use
  Company Number: US-GLAXOSMITHKLINE-A0955278A

PATIENT
  Age: 60 Year
  Sex: Female

DRUGS (2)
  1. PAROXETINE [Suspect]
     Indication: ANXIETY
     Dosage: 60MG SINGLE DOSE
     Route: 048
     Dates: start: 19960101
  2. XANAX [Concomitant]

REACTIONS (4)
  - FALL [None]
  - SWOLLEN TONGUE [None]
  - AMNESIA [None]
  - SENSORY LOSS [None]
